FAERS Safety Report 11298531 (Version 1)
Quarter: 2015Q3

REPORT INFORMATION
  Report Type: Spontaneous
  Country: US (occurrence: US)
  Receive Date: 20150722
  Receipt Date: 20150722
  Transmission Date: 20151125
  Serious: No
  Sender: FDA-Public Use
  Company Number: US-ELI_LILLY_AND_COMPANY-US201112004513

PATIENT
  Sex: Female

DRUGS (2)
  1. HUMATROPE [Suspect]
     Active Substance: SOMATROPIN
     Indication: DIABETES MELLITUS
     Dosage: 0.6 MG, QD
     Dates: start: 200211
  2. HUMATROPE [Suspect]
     Active Substance: SOMATROPIN
     Dosage: 0.6 MG, QD

REACTIONS (3)
  - Insulin-like growth factor increased [Unknown]
  - Oedema peripheral [Unknown]
  - Off label use [Unknown]
